FAERS Safety Report 5142228-1 (Version None)
Quarter: 2006Q4

REPORT INFORMATION
  Report Type: 
  Country: None (occurrence: None)
  Receive Date: 20061030
  Receipt Date: 20061030
  Transmission Date: 20070319
  Serious: Yes (Death)
  Sender: FDA-Public Use
  Company Number: None

PATIENT
  Age: 60 Year
  Sex: Male

DRUGS (2)
  1. AZITHROMYCIN [Suspect]
     Indication: BRONCHITIS
     Dosage: PO
     Route: 048
     Dates: start: 20051128, end: 20051129
  2. AZITHROMYCIN [Suspect]
     Indication: PNEUMONIA
     Dosage: PO
     Route: 048
     Dates: start: 20051128, end: 20051129

REACTIONS (12)
  - ABDOMINAL COMPARTMENT SYNDROME [None]
  - ANAEMIA [None]
  - HEPATIC FAILURE [None]
  - HEPATIC NECROSIS [None]
  - MIXED HEPATOCELLULAR-CHOLESTATIC INJURY [None]
  - MULTIPLE MYELOMA [None]
  - PHARYNGEAL OEDEMA [None]
  - PLEURAL EFFUSION [None]
  - PRURITUS [None]
  - RASH [None]
  - RENAL FAILURE [None]
  - SEPSIS [None]
